FAERS Safety Report 4919691-1 (Version None)
Quarter: 2006Q1

REPORT INFORMATION
  Report Type: 
  Country: None (occurrence: None)
  Receive Date: 20060221
  Receipt Date: 20060214
  Transmission Date: 20060701
  Serious: Yes (Life-Threatening)
  Sender: FDA-Public Use
  Company Number: 2006021550

PATIENT
  Age: 27 Year
  Sex: Female
  Weight: 59 kg

DRUGS (2)
  1. NEURONTIN [Suspect]
     Indication: SOMATOFORM DISORDER
     Dosage: 2400 MG (800 MG, 3 IN 1 D), ORAL
     Route: 048
     Dates: start: 20050801, end: 20051001
  2. AMITRIPTYLINE HCL [Suspect]
     Indication: SOMATOFORM DISORDER
     Dosage: 10 MG (10 MG, 1 IN 1 D), ORAL
     Route: 048
     Dates: start: 20050801, end: 20051001

REACTIONS (3)
  - HEPATOCELLULAR DAMAGE [None]
  - HEPATOTOXICITY [None]
  - HYPERSENSITIVITY [None]
